FAERS Safety Report 8572917-8 (Version None)
Quarter: 2012Q2

REPORT INFORMATION
  Report Type: 
  Country: None (occurrence: None)
  Receive Date: 20120423
  Receipt Date: 20090121
  Transmission Date: 20120825
  Serious: Yes (Hospitalization, Other)
  Sender: FDA-Public Use
  Company Number: PHEH2008US09265

PATIENT
  Age: 19 Year
  Sex: Male
  Weight: 60 kg

DRUGS (7)
  1. EXJADE [Suspect]
     Indication: SICKLE CELL ANAEMIA
     Dosage: 1125 MG, QD, ORAL
     Route: 048
     Dates: start: 20060202, end: 20081008
  2. EXJADE [Suspect]
     Indication: IRON OVERLOAD
     Dosage: 1125 MG, QD, ORAL
     Route: 048
     Dates: start: 20060202, end: 20081008
  3. FOLIC ACID [Concomitant]
  4. PREVACID [Concomitant]
  5. MIRALAX [Concomitant]
  6. COLACE (DOCUSATE SODIUM) [Concomitant]
  7. BENADRYL ^ACHE^ (AMMONIUM CHLORIDE, DIPHENHYDRAMINE HYDROCHLORIDE, MEN [Concomitant]

REACTIONS (7)
  - SICKLE CELL ANAEMIA WITH CRISIS [None]
  - SKIN ULCER [None]
  - ACUTE CHEST SYNDROME [None]
  - ABDOMINAL PAIN [None]
  - SERUM FERRITIN INCREASED [None]
  - PAIN [None]
  - CHOLELITHIASIS [None]
